FAERS Safety Report 20004272 (Version 1)
Quarter: 2021Q4

REPORT INFORMATION
  Report Type: Spontaneous
  Country: FR (occurrence: FR)
  Receive Date: 20211028
  Receipt Date: 20211028
  Transmission Date: 20220303
  Serious: Yes (Other)
  Sender: FDA-Public Use
  Company Number: FR-ORGANON-O2110FRA002255

PATIENT
  Sex: Female

DRUGS (3)
  1. SINEMET [Suspect]
     Active Substance: CARBIDOPA\LEVODOPA
     Indication: Parkinson^s disease
     Dosage: ONE TABLET IN THE MORNING, AT NOON AND IN THE EVENING, TID
     Route: 048
     Dates: start: 2017, end: 202110
  2. SINEMET [Suspect]
     Active Substance: CARBIDOPA\LEVODOPA
     Dosage: 1 DOSAGE FORM, BID (1 TABLET IN THE MORNING AND IN THE EVENING)
     Route: 048
     Dates: start: 202110
  3. SINEMET [Suspect]
     Active Substance: CARBIDOPA\LEVODOPA
     Indication: Parkinson^s disease
     Dosage: ONE TABLET AT NOON
     Route: 048
     Dates: start: 202110

REACTIONS (3)
  - Diabetes mellitus [Unknown]
  - Glaucoma [Unknown]
  - Drug ineffective [Unknown]
